FAERS Safety Report 18509278 (Version 1)
Quarter: 2020Q4

REPORT INFORMATION
  Report Type: Report from Study
  Country: US (occurrence: US)
  Receive Date: 20201117
  Receipt Date: 20201117
  Transmission Date: 20210114
  Serious: Yes (Other)
  Sender: FDA-Public Use
  Company Number: US-ROCHE-2709512

PATIENT
  Age: 59 Year
  Sex: Male
  Weight: 84.8 kg

DRUGS (6)
  1. OBINUTUZUMAB. [Suspect]
     Active Substance: OBINUTUZUMAB
     Dosage: 1000 MG IV ON DAY 1, CYCLE 2-6
     Route: 042
  2. OBINUTUZUMAB. [Suspect]
     Active Substance: OBINUTUZUMAB
     Dosage: 1000 MG IV ON DAY 8, CYCLE 1
     Route: 042
  3. OBINUTUZUMAB. [Suspect]
     Active Substance: OBINUTUZUMAB
     Dosage: 1000 MG IV ON DAY 15, CYCLE 1
     Route: 042
  4. OBINUTUZUMAB. [Suspect]
     Active Substance: OBINUTUZUMAB
     Indication: CHRONIC LYMPHOCYTIC LEUKAEMIA
     Dosage: 100 MG IV ON DAY 1, CYCLE 1?TOTAL DOSE ADMINISTERED THIS COURSE (DOSE): 420MG, LAST ADMINISTERED DAT
     Route: 042
     Dates: start: 20200512
  5. OBINUTUZUMAB. [Suspect]
     Active Substance: OBINUTUZUMAB
     Dosage: 900 MG ON DAY 2, CYCLE 1
     Route: 042
  6. IBRUTINIB [Suspect]
     Active Substance: IBRUTINIB
     Indication: CHRONIC LYMPHOCYTIC LEUKAEMIA
     Dosage: ON DAYS 1-28, CYCLES 1-19
     Route: 048
     Dates: start: 20200512

REACTIONS (2)
  - Lymphocyte count increased [Recovered/Resolved]
  - Leukocytosis [Recovered/Resolved]

NARRATIVE: CASE EVENT DATE: 20200512
